FAERS Safety Report 7538064-9 (Version None)
Quarter: 2011Q2

REPORT INFORMATION
  Report Type: 
  Country: None (occurrence: None)
  Receive Date: 20110609
  Receipt Date: 20110602
  Transmission Date: 20111010
  Serious: Yes (Hospitalization, Other)
  Sender: FDA-Public Use
  Company Number: US-PFIZER INC-2011120917

PATIENT
  Sex: Female

DRUGS (2)
  1. ZYVOX [Suspect]
     Dosage: UNK
  2. LITHIUM [Interacting]
     Dosage: UNK

REACTIONS (9)
  - DIZZINESS [None]
  - DRUG INTERACTION [None]
  - ASTHENIA [None]
  - FATIGUE [None]
  - COGNITIVE DISORDER [None]
  - NEUROPATHY PERIPHERAL [None]
  - HYPOAESTHESIA [None]
  - MUSCULAR WEAKNESS [None]
  - GAIT DISTURBANCE [None]
